FAERS Safety Report 18009096 (Version 1)
Quarter: 2020Q3

REPORT INFORMATION
  Report Type: Spontaneous
  Country: US (occurrence: US)
  Receive Date: 20200710
  Receipt Date: 20200710
  Transmission Date: 20201103
  Serious: Yes (Other)
  Sender: FDA-Public Use
  Company Number: US-SAOL THERAPEUTICS-2019SAO00385

PATIENT
  Age: 55 Year
  Sex: Male

DRUGS (5)
  1. LIORESAL [Suspect]
     Active Substance: BACLOFEN
     Dosage: 125 ?G, \DAY
     Route: 037
     Dates: start: 20190903, end: 20190918
  2. LIORESAL [Suspect]
     Active Substance: BACLOFEN
     Dosage: 100 ?G, \DAY
     Route: 037
     Dates: start: 20190918, end: 20190919
  3. LIORESAL [Suspect]
     Active Substance: BACLOFEN
     Dosage: 100 ?G, \DAY
     Route: 037
     Dates: end: 20190903
  4. LIORESAL [Suspect]
     Active Substance: BACLOFEN
     Dosage: 130 ?G, \DAY (PER PUMP LOG 129.97 ?G/DAY)
     Route: 037
     Dates: start: 20190919
  5. LIORESAL [Suspect]
     Active Substance: BACLOFEN
     Indication: MUSCLE SPASTICITY
     Dosage: 50.01 ?G, \DAY
     Route: 037
     Dates: start: 20190809, end: 2019

REACTIONS (7)
  - Pain in extremity [Recovered/Resolved]
  - Hypertonia [Recovered/Resolved]
  - Gait disturbance [Unknown]
  - Muscle tightness [Recovered/Resolved]
  - Device failure [Recovered/Resolved]
  - Device issue [Recovered/Resolved]
  - Muscle spasticity [Recovering/Resolving]

NARRATIVE: CASE EVENT DATE: 201909
